FAERS Safety Report 6528118-8 (Version None)
Quarter: 2010Q1

REPORT INFORMATION
  Report Type: 
  Country: None (occurrence: None)
  Receive Date: 20100106
  Receipt Date: 20091230
  Transmission Date: 20100710
  Serious: Yes (Other)
  Sender: FDA-Public Use
  Company Number: US-PFIZER INC-2009316446

PATIENT
  Age: 48 Year
  Sex: Female
  Weight: 74.83 kg

DRUGS (1)
  1. CHANTIX [Suspect]
     Indication: SMOKING CESSATION THERAPY
     Dosage: UNK
     Dates: start: 20071227, end: 20080227

REACTIONS (3)
  - ABNORMAL BEHAVIOUR [None]
  - FEELING ABNORMAL [None]
  - IRRITABILITY [None]
